FAERS Safety Report 15962689 (Version 1)
Quarter: 2019Q1

REPORT INFORMATION
  Report Type: Spontaneous
  Country: SE (occurrence: SE)
  Receive Date: 20190214
  Receipt Date: 20190214
  Transmission Date: 20190417
  Serious: Yes (Death)
  Sender: FDA-Public Use
  Company Number: PHHY2019SE033973

PATIENT
  Age: 76 Year
  Sex: Male

DRUGS (1)
  1. ACETYLSALICYLIC ACID [Suspect]
     Active Substance: ASPIRIN
     Indication: JOINT SWELLING
     Route: 065

REACTIONS (3)
  - Wrong product administered [Fatal]
  - Dyspnoea [Fatal]
  - Cardiac arrest [Fatal]
